FAERS Safety Report 5660669-0 (Version None)
Quarter: 2008Q1

REPORT INFORMATION
  Report Type: 
  Country: None (occurrence: None)
  Receive Date: 20080311
  Receipt Date: 20080305
  Transmission Date: 20080703
  Serious: Yes (Hospitalization)
  Sender: FDA-Public Use
  Company Number: IT-BAYER-200814081GPV

PATIENT
  Age: 83 Year
  Sex: Female

DRUGS (5)
  1. ACETYLSALICYLIC ACID SRT [Suspect]
     Indication: PROPHYLAXIS
     Dosage: TOTAL DAILY DOSE: 100 MG  UNIT DOSE: 100 MG
     Route: 048
     Dates: start: 20000101, end: 20080207
  2. AULIN (NIMESULIDE) [Suspect]
     Indication: ARTHRALGIA
     Route: 048
     Dates: start: 20050101, end: 20080207
  3. ENAPREN (ENALAPRIL) [Concomitant]
     Indication: HYPERTENSION
     Dosage: TOTAL DAILY DOSE: 5 MG  UNIT DOSE: 5 MG
     Route: 048
     Dates: start: 20000101, end: 20080208
  4. DIAMICRON (GLICLAZIDE) [Concomitant]
     Indication: DIABETES MELLITUS
     Route: 048
     Dates: start: 19900101, end: 20080208
  5. GLUCOPHAGE [Concomitant]
     Indication: DIABETES MELLITUS
     Route: 048
     Dates: start: 19900101, end: 20080208

REACTIONS (4)
  - ANAEMIA [None]
  - GASTRIC ULCER [None]
  - HAEMATEMESIS [None]
  - MELAENA [None]
